FAERS Safety Report 5092828-2 (Version None)
Quarter: 2006Q3

REPORT INFORMATION
  Report Type: 
  Country: None (occurrence: None)
  Receive Date: 20060828
  Receipt Date: 20060807
  Transmission Date: 20061208
  Serious: Yes (Hospitalization)
  Sender: FDA-Public Use
  Company Number: E3810-00169-SPO-US

PATIENT
  Age: 72 Year
  Sex: Male

DRUGS (10)
  1. ACIPHEX [Suspect]
     Dosage: 20 MG, ORAL
     Route: 048
  2. SERTRALINE HCL [Suspect]
     Dosage: 50 MG, ORAL
     Route: 048
  3. ACETAMINOPHEN [Concomitant]
  4. BETAMETHAZONE VALERATE 0.1% CREAM (BETAMETHASONE VALERATE) [Concomitant]
  5. COLESTIPOL (COLESTIPOL HYDROCHLORIDE) [Concomitant]
  6. FUROSEMIDE [Concomitant]
  7. METOPROLOL (METOPROLOL) [Concomitant]
  8. NITROGLYCERINE PATCH (GLYCERYL TRINITRATE) [Concomitant]
  9. PREDNISONE TAB [Concomitant]
  10. SIMVASTATIN [Concomitant]

REACTIONS (4)
  - APLASIA PURE RED CELL [None]
  - COUGH [None]
  - DYSPNOEA EXERTIONAL [None]
  - FATIGUE [None]
